FAERS Safety Report 24530311 (Version 4)
Quarter: 2024Q4

REPORT INFORMATION
  Report Type: Spontaneous
  Country: ES (occurrence: ES)
  Receive Date: 20241021
  Receipt Date: 20241202
  Transmission Date: 20250115
  Serious: Yes (Hospitalization, Other)
  Sender: PFIZER
  Company Number: ES-ROCHE-10000009971

PATIENT
  Age: 72 Year
  Sex: Male
  Weight: 64 kg

DRUGS (78)
  1. DOXORUBICIN HYDROCHLORIDE [Suspect]
     Active Substance: DOXORUBICIN HYDROCHLORIDE
     Indication: Diffuse large B-cell lymphoma
     Dosage: 97 MG, EVERY 3 WEEKS
     Route: 042
     Dates: start: 20240523
  2. DOXORUBICIN HYDROCHLORIDE [Suspect]
     Active Substance: DOXORUBICIN HYDROCHLORIDE
     Dosage: 97 MG, EVERY 3 WEEKS
     Route: 042
     Dates: start: 20240613
  3. COLUMVI [Suspect]
     Active Substance: GLOFITAMAB-GXBM
     Indication: Diffuse large B-cell lymphoma
     Dosage: 0.5 MG, WEEKLY
     Route: 042
     Dates: start: 20240620
  4. CYCLOPHOSPHAMIDE [Suspect]
     Active Substance: CYCLOPHOSPHAMIDE
     Indication: Diffuse large B-cell lymphoma
     Dosage: 1455 MG, EVERY 3 WEEKS
     Route: 042
     Dates: start: 20240523
  5. CYCLOPHOSPHAMIDE [Suspect]
     Active Substance: CYCLOPHOSPHAMIDE
     Dosage: 1455 MG, EVERY 3 WEEKS
     Route: 042
     Dates: start: 20240613
  6. PREDNISONE [Suspect]
     Active Substance: PREDNISONE
     Indication: Diffuse large B-cell lymphoma
     Dosage: 100 MG, EVERY 3 WEEKS
     Route: 048
     Dates: start: 20240523
  7. PREDNISONE [Suspect]
     Active Substance: PREDNISONE
     Dosage: 100 MG, EVERY 3 WEEKS
     Route: 048
     Dates: start: 20240617
  8. POLIVY [Concomitant]
     Active Substance: POLATUZUMAB VEDOTIN-PIIQ
     Indication: Diffuse large B-cell lymphoma
     Dosage: 144 MG, EVERY 3 WEEKS
     Route: 042
     Dates: start: 20240523
  9. POLIVY [Concomitant]
     Active Substance: POLATUZUMAB VEDOTIN-PIIQ
     Dosage: 144 MG, EVERY 3 WEEKS
     Route: 042
     Dates: start: 20240613
  10. MABTHERA [Concomitant]
     Active Substance: RITUXIMAB
     Indication: Diffuse large B-cell lymphoma
     Dosage: 727 MG, EVERY 3 WEEKS
     Route: 042
     Dates: start: 20240523
  11. MABTHERA [Concomitant]
     Active Substance: RITUXIMAB
     Dosage: 727 MG, EVERY 3 WEEKS
     Route: 042
     Dates: start: 20240613
  12. METOCLOPRAMIDE [Concomitant]
     Active Substance: METOCLOPRAMIDE
     Dosage: FREQ:.5 D;
     Dates: start: 20240515, end: 20240612
  13. ENOXAPARIN SODIUM [Concomitant]
     Active Substance: ENOXAPARIN SODIUM
     Dosage: 80 MG, 1X/DAY
     Route: 048
     Dates: start: 20240515, end: 20240628
  14. MORPHINE [Concomitant]
     Active Substance: MORPHINE
     Indication: Pain
     Dosage: 80 MG, 1X/DAY
     Route: 048
     Dates: start: 20240515, end: 20240529
  15. MORPHINE [Concomitant]
     Active Substance: MORPHINE
     Dosage: 0.5 MG, AS NEEDED
     Dates: start: 20240515
  16. RASBURICASE [Concomitant]
     Active Substance: RASBURICASE
     Indication: Blood uric acid increased
     Dosage: 16 MG, 1X/DAY
     Route: 042
     Dates: start: 20240527, end: 20240527
  17. GRANULOCYTE COLONY-STIMULATING FACTOR NOS [Concomitant]
     Active Substance: GRANULOCYTE COLONY-STIMULATING FACTOR NOS
     Indication: Prophylaxis
     Dosage: 300 UG, 1X/DAY
     Route: 048
     Dates: start: 20240525
  18. ACYCLOVIR [Concomitant]
     Active Substance: ACYCLOVIR
     Indication: Prophylaxis
     Dosage: 800 MG, 1X/DAY
     Route: 048
     Dates: start: 20240523
  19. ALLOPURINOL [Concomitant]
     Active Substance: ALLOPURINOL
     Indication: Prophylaxis
     Dosage: 300 MG, 1X/DAY
     Route: 048
     Dates: start: 20240523
  20. FENTANYL [Concomitant]
     Active Substance: FENTANYL
     Dosage: 12 UG, 1X/DAY
     Route: 062
     Dates: start: 20240528, end: 20240604
  21. FENTANYL [Concomitant]
     Active Substance: FENTANYL
     Dosage: 50 UG, 3X/DAY
     Route: 062
     Dates: start: 20240605
  22. MEROPENEM [Concomitant]
     Active Substance: MEROPENEM
     Indication: Hypoproteinaemia
     Dosage: FREQ:.33 WK;
     Dates: start: 20240601, end: 20240607
  23. MEROPENEM [Concomitant]
     Active Substance: MEROPENEM
     Dosage: 1000 MG, 3X/DAY
     Dates: start: 20240622
  24. FILGRASTIM [Concomitant]
     Active Substance: FILGRASTIM
     Indication: Neutropenia
     Dosage: 300 UG, 1X/DAY
     Route: 058
     Dates: start: 20240622
  25. FILGRASTIM [Concomitant]
     Active Substance: FILGRASTIM
     Dosage: 300000 IU, 1X/DAY
     Route: 058
     Dates: start: 20240616, end: 20240620
  26. ACETAMINOPHEN [Concomitant]
     Active Substance: ACETAMINOPHEN
     Indication: Pyrexia
     Dosage: 1000 MG, SINGLE
     Route: 042
     Dates: start: 20240523, end: 20240523
  27. ACETAMINOPHEN [Concomitant]
     Active Substance: ACETAMINOPHEN
     Dosage: 1000 MG, 1X/DAY
     Route: 042
     Dates: start: 20240602, end: 20240603
  28. ACETAMINOPHEN [Concomitant]
     Active Substance: ACETAMINOPHEN
     Dosage: 500 MG, SINGLE
     Route: 048
     Dates: start: 20240613, end: 20240613
  29. ACETAMINOPHEN [Concomitant]
     Active Substance: ACETAMINOPHEN
     Dosage: 500 MG, SINGLE
     Route: 048
     Dates: start: 20240613, end: 20240613
  30. ACETAMINOPHEN [Concomitant]
     Active Substance: ACETAMINOPHEN
     Dosage: 500 MG, SINGLE
     Route: 048
     Dates: start: 20240620, end: 20240620
  31. ACETAMINOPHEN [Concomitant]
     Active Substance: ACETAMINOPHEN
     Dosage: 500 MG, SINGLE
     Route: 048
     Dates: start: 20240706, end: 20240706
  32. ACETAMINOPHEN [Concomitant]
     Active Substance: ACETAMINOPHEN
     Dosage: FREQ:.33 WK;
     Route: 048
     Dates: start: 20240622
  33. ACETAMINOPHEN [Concomitant]
     Active Substance: ACETAMINOPHEN
     Dosage: 500 MG, SINGLE
     Dates: start: 20240809, end: 20240809
  34. ACETAMINOPHEN [Concomitant]
     Active Substance: ACETAMINOPHEN
     Dosage: 500 MG, SINGLE
     Dates: start: 20240823, end: 20240823
  35. ACETAMINOPHEN [Concomitant]
     Active Substance: ACETAMINOPHEN
     Dosage: 500 MG, SINGLE
     Dates: start: 20241011, end: 20241011
  36. ACETAMINOPHEN [Concomitant]
     Active Substance: ACETAMINOPHEN
     Dosage: 500 MG, SINGLE
     Dates: start: 20241104, end: 20241104
  37. ESOMEPRAZOLE [Concomitant]
     Active Substance: ESOMEPRAZOLE
     Dosage: 40 MG, 1X/DAY
     Route: 048
  38. LIDOCAINE [Concomitant]
     Active Substance: LIDOCAINE
     Indication: Mucosal inflammation
     Dosage: UNK, AS NEEDED
     Route: 048
     Dates: start: 20240601, end: 20240612
  39. GABAPENTIN [Concomitant]
     Active Substance: GABAPENTIN
     Indication: Pain
     Dosage: FREQ:.5 D;
     Route: 048
     Dates: start: 20240612
  40. PIPERACILLIN [Concomitant]
     Active Substance: PIPERACILLIN
     Indication: Pyrexia
     Dosage: UNK, 1X/DAY
     Route: 058
     Dates: start: 20240531, end: 20240601
  41. TAZOBACTAM [Concomitant]
     Active Substance: TAZOBACTAM
     Indication: Pyrexia
     Dosage: 0.5 G, 1X/DAY
     Route: 058
     Dates: start: 20240531, end: 20240601
  42. AMIKACIN [Concomitant]
     Active Substance: AMIKACIN
     Indication: Pyrexia
     Dosage: 1500 MG, 1X/DAY
     Route: 042
     Dates: start: 20240531, end: 20240601
  43. EMULIQUEN SIMPLE [PARAFFIN, LIQUID] [Concomitant]
     Indication: Constipation
     Dosage: 4.5 MG, 1X/DAY
     Route: 048
     Dates: start: 20240524
  44. PREDNISONE [Concomitant]
     Active Substance: PREDNISONE
     Dosage: 50 MG, 1X/DAY
     Route: 042
     Dates: start: 20240517, end: 20240522
  45. CEFEPIME [Concomitant]
     Active Substance: CEFEPIME HYDROCHLORIDE
     Dosage: 2 GTT
     Route: 058
     Dates: start: 20240629, end: 20240701
  46. DEXAMETHASONE [Concomitant]
     Active Substance: DEXAMETHASONE
     Indication: Pyrexia
     Dosage: 20 MG, SINGLE
     Route: 042
     Dates: start: 20240620, end: 20240620
  47. DEXAMETHASONE [Concomitant]
     Active Substance: DEXAMETHASONE
     Dosage: 20 MG, SINGLE
     Route: 042
     Dates: start: 20240706, end: 20240706
  48. DEXAMETHASONE [Concomitant]
     Active Substance: DEXAMETHASONE
     Dosage: 10 MG, 4X/DAY
     Route: 042
     Dates: start: 20240622
  49. DEXAMETHASONE [Concomitant]
     Active Substance: DEXAMETHASONE
     Dosage: 4 MG
     Route: 042
     Dates: start: 20240702, end: 20240703
  50. DEXAMETHASONE [Concomitant]
     Active Substance: DEXAMETHASONE
     Dosage: 10 MG, 2X/DAY
     Route: 042
     Dates: start: 20240623, end: 20240623
  51. DEXAMETHASONE [Concomitant]
     Active Substance: DEXAMETHASONE
     Dosage: 10 MG, SINGLE
     Route: 042
     Dates: start: 20240624, end: 20240624
  52. DEXAMETHASONE [Concomitant]
     Active Substance: DEXAMETHASONE
     Dosage: 10 MG, SINGLE
     Route: 042
     Dates: start: 20240708, end: 20240711
  53. DEXAMETHASONE [Concomitant]
     Active Substance: DEXAMETHASONE
     Dosage: 120 MG, SINGLE
     Dates: start: 20240620, end: 20240620
  54. DEXAMETHASONE [Concomitant]
     Active Substance: DEXAMETHASONE
     Dosage: 20 MG, SINGLE
     Route: 042
     Dates: start: 20240809, end: 20240809
  55. DEXAMETHASONE [Concomitant]
     Active Substance: DEXAMETHASONE
     Dosage: 20 MG, SINGLE
     Route: 042
     Dates: start: 20240920, end: 20240920
  56. DEXAMETHASONE [Concomitant]
     Active Substance: DEXAMETHASONE
     Dosage: 20 MG, SINGLE
     Route: 042
     Dates: start: 20241011, end: 20241011
  57. DEXAMETHASONE [Concomitant]
     Active Substance: DEXAMETHASONE
     Dosage: 20 MG, SINGLE
     Route: 042
     Dates: start: 20241104, end: 20241104
  58. DEXCHLORPHENIRAMINE [Concomitant]
     Active Substance: DEXCHLORPHENIRAMINE
     Dosage: 5 MG, SINGLE
     Route: 042
     Dates: start: 20240613, end: 20240613
  59. DEXCHLORPHENIRAMINE [Concomitant]
     Active Substance: DEXCHLORPHENIRAMINE
     Dosage: 5 MG, SINGLE
     Route: 042
     Dates: start: 20240620, end: 20240620
  60. DEXCHLORPHENIRAMINE [Concomitant]
     Active Substance: DEXCHLORPHENIRAMINE
     Dosage: 5 MG, SINGLE
     Route: 042
     Dates: start: 20240523, end: 20240523
  61. DEXCHLORPHENIRAMINE [Concomitant]
     Active Substance: DEXCHLORPHENIRAMINE
     Dosage: 5 MG, SINGLE
     Route: 042
     Dates: start: 20240706, end: 20240706
  62. DEXCHLORPHENIRAMINE [Concomitant]
     Active Substance: DEXCHLORPHENIRAMINE
     Dosage: 5 MG, SINGLE
     Route: 042
     Dates: start: 20240809, end: 20240809
  63. DEXCHLORPHENIRAMINE [Concomitant]
     Active Substance: DEXCHLORPHENIRAMINE
     Dosage: 5 MG, SINGLE
     Route: 042
     Dates: start: 20240823, end: 20240823
  64. DEXCHLORPHENIRAMINE [Concomitant]
     Active Substance: DEXCHLORPHENIRAMINE
     Dosage: 5 MG, SINGLE
     Route: 042
     Dates: start: 20240920, end: 20240920
  65. DEXCHLORPHENIRAMINE [Concomitant]
     Active Substance: DEXCHLORPHENIRAMINE
     Dosage: 5 MG, SINGLE
     Route: 042
     Dates: start: 20241011, end: 20241011
  66. DEXCHLORPHENIRAMINE [Concomitant]
     Active Substance: DEXCHLORPHENIRAMINE
     Dosage: 5 MG, SINGLE
     Route: 042
     Dates: start: 20241104, end: 20241104
  67. SULFAMETHOXAZOLE\TRIMETHOPRIM [Concomitant]
     Active Substance: SULFAMETHOXAZOLE\TRIMETHOPRIM
     Dosage: 960 MG, 1X/DAY
     Route: 058
     Dates: start: 20240523, end: 20240710
  68. SULFAMETHOXAZOLE\TRIMETHOPRIM [Concomitant]
     Active Substance: SULFAMETHOXAZOLE\TRIMETHOPRIM
     Dosage: 960 MG, 1X/DAY
     Route: 058
     Dates: start: 20240602
  69. SULFAMETHOXAZOLE\TRIMETHOPRIM [Concomitant]
     Active Substance: SULFAMETHOXAZOLE\TRIMETHOPRIM
     Dosage: 480 MG, 3X/DAY
     Route: 058
     Dates: start: 20240812, end: 20240816
  70. MORPHINE HYDROCHLORIDE [Concomitant]
     Active Substance: MORPHINE HYDROCHLORIDE
     Indication: Pain
     Dosage: 3 MG, SINGLE
     Route: 042
     Dates: start: 20240603, end: 20240603
  71. MORPHINE HYDROCHLORIDE [Concomitant]
     Active Substance: MORPHINE HYDROCHLORIDE
     Dosage: 3 MG, SINGLE
     Route: 042
     Dates: start: 20240530, end: 20240530
  72. ERTAPENEM [Concomitant]
     Active Substance: ERTAPENEM
     Indication: Bacteraemia
     Dosage: FREQ:.33 WK;
     Route: 042
     Dates: start: 20240604, end: 20240607
  73. FENTANYL CITRATE [Concomitant]
     Active Substance: FENTANYL CITRATE
     Dosage: FREQ:3 D;
     Route: 062
     Dates: start: 20240605
  74. ONDANSETRON [Concomitant]
     Active Substance: ONDANSETRON
     Dosage: 8 MG, AS NEEDED
     Route: 042
     Dates: start: 20240613, end: 20240616
  75. ONDANSETRON [Concomitant]
     Active Substance: ONDANSETRON
     Dosage: 8 MG, SINGLE
     Route: 042
     Dates: start: 20240613, end: 20240613
  76. ONDANSETRON [Concomitant]
     Active Substance: ONDANSETRON
     Dosage: 8 MG, 3X/DAY
     Route: 042
     Dates: start: 20240823, end: 20240826
  77. ONDANSETRON [Concomitant]
     Active Substance: ONDANSETRON
     Dosage: 8 MG, SINGLE
     Route: 042
     Dates: start: 20240823, end: 20240823
  78. EPOETIN ALFA [Concomitant]
     Active Substance: ERYTHROPOIETIN
     Dosage: 3000 IU, WEEKLY
     Route: 058
     Dates: start: 20240612

REACTIONS (1)
  - Cytokine release syndrome [Recovered/Resolved]

NARRATIVE: CASE EVENT DATE: 20240621
